FAERS Safety Report 9167457 (Version 3)
Quarter: 2014Q3

REPORT INFORMATION
  Report Type: Spontaneous
  Country: US (occurrence: US)
  Receive Date: 20130318
  Receipt Date: 20140827
  Transmission Date: 20150326
  Serious: Yes (Hospitalization, Other)
  Sender: FDA-Public Use
  Company Number: US-JNJFOC-20130308988

PATIENT
  Age: 53 Year
  Sex: Female
  Weight: 68.04 kg

DRUGS (4)
  1. CORTISONE [Concomitant]
     Active Substance: CORTISONE\HYDROCORTISONE
     Route: 065
  2. SIMPONI [Suspect]
     Active Substance: GOLIMUMAB
     Indication: PSORIATIC ARTHROPATHY
     Route: 058
     Dates: start: 2012
  3. VALIUM [Concomitant]
     Active Substance: DIAZEPAM
     Indication: MUSCLE CONTRACTURE
     Route: 065
  4. STEROIDS NOS [Concomitant]
     Active Substance: UNSPECIFIED INGREDIENT
     Route: 065

REACTIONS (8)
  - Device malfunction [Unknown]
  - Drug dose omission [Unknown]
  - Influenza [Recovered/Resolved]
  - Pain [Not Recovered/Not Resolved]
  - Bronchitis [Recovered/Resolved]
  - Tendonitis [Unknown]
  - Onychomadesis [Unknown]
  - Therapeutic response decreased [Not Recovered/Not Resolved]

NARRATIVE: CASE EVENT DATE: 2012
